FAERS Safety Report 26177607 (Version 1)
Quarter: 2025Q4

REPORT INFORMATION
  Report Type: Spontaneous
  Country: EU (occurrence: EU)
  Receive Date: 20251219
  Receipt Date: 20251219
  Transmission Date: 20260117
  Serious: Yes (Hospitalization)
  Sender: TEVA
  Company Number: None

PATIENT
  Age: 79 Year
  Sex: Male

DRUGS (8)
  1. NAPROXEN [Suspect]
     Active Substance: NAPROXEN
     Indication: Product used for unknown indication
     Dosage: DU, NAPROXEN (2002A)
     Route: 048
     Dates: start: 20240429, end: 20240429
  2. TERBUTALINE SULFATE [Concomitant]
     Active Substance: TERBUTALINE SULFATE
     Indication: Asthma
     Dosage: C/24 H, TERBASMIN TURBUHALER INHALATION POWDER FOR INHALATION, 1 INHALER OF 120 DOSES
     Dates: start: 20250411
  3. DUTASTERIDA TAMSULOSINA [Concomitant]
     Indication: Dysuria
     Dosage: 1.0 CAPSULES OF, DUTASTERIDA/TAMSULOSINA VIATRIS 0.5 MG/0.4 MG EFG, 30 CAPSULES
     Route: 048
     Dates: start: 20240914
  4. NASONEX [Concomitant]
     Active Substance: MOMETASONE FUROATE
     Indication: Asthma
     Dosage: C/24 H, NASAL SPRAY SUSPENSION, 1 SPRAY BOTTLE OF 140 DOSES, NASAL
     Route: 065
     Dates: start: 20250411
  5. DESFESOTERODINE SUCCINATE [Concomitant]
     Active Substance: DESFESOTERODINE SUCCINATE
     Indication: Dysuria
     Dosage: DECE, EXTENDED-RELEASE TABLETS, 28 TABLETS
     Route: 048
     Dates: start: 20241004
  6. OMEPRAZOLE [Concomitant]
     Active Substance: OMEPRAZOLE
     Indication: Chronic gastritis
     Dosage: A-DE, PHARMACEUTICAL, EFG, 56 CAPSULES
     Route: 048
     Dates: start: 20211015
  7. FOSTER [Concomitant]
     Active Substance: BECLOMETHASONE\FORMOTEROL
     Indication: Asthma
     Dosage: 2.0 PUFF C/12 H, 200 MICROGRAMS / 6 MICROGRAMS/PULSE INHALATION SOLUTION IN PRESSURIZED CONTAINER...
     Dates: start: 20250410
  8. PITAVASTATINA CINFA [Concomitant]
     Indication: Hyperlipidaemia
     Dosage: C/24 H, EFG, 28 TABLETS
     Route: 048
     Dates: start: 20180504

REACTIONS (2)
  - Bronchospasm [Recovered/Resolved]
  - Self-medication [Recovered/Resolved]

NARRATIVE: CASE EVENT DATE: 20240429
